FAERS Safety Report 24862593 (Version 1)
Quarter: 2025Q1

REPORT INFORMATION
  Report Type: Spontaneous
  Country: US (occurrence: US)
  Receive Date: 20250120
  Receipt Date: 20250120
  Transmission Date: 20250409
  Serious: No
  Sender: ROCHE
  Company Number: US-ROCHE-10000182797

PATIENT
  Age: 52 Year

DRUGS (1)
  1. HERCEPTIN [Suspect]
     Active Substance: TRASTUZUMAB
     Indication: Neurofibromatosis
     Route: 042

REACTIONS (3)
  - Chills [Unknown]
  - Pain [Unknown]
  - Off label use [Unknown]
